FAERS Safety Report 18903406 (Version 1)
Quarter: 2021Q1

REPORT INFORMATION
  Report Type: Spontaneous
  Country: US (occurrence: US)
  Receive Date: 20210216
  Receipt Date: 20210216
  Transmission Date: 20210420
  Serious: Yes (Other)
  Sender: FDA-Public Use
  Company Number: None

PATIENT
  Age: 56 Year
  Sex: Male
  Weight: 77.85 kg

DRUGS (5)
  1. LOSARTAN POTASSIUM. [Suspect]
     Active Substance: LOSARTAN POTASSIUM
     Indication: HYPERTENSION
     Dosage: ?          QUANTITY:1 TABLET(S);?
     Route: 048
     Dates: start: 20210205, end: 20210215
  2. TYLENOL EXTRA STRENGTH [Concomitant]
     Active Substance: ACETAMINOPHEN
  3. PEPCID AC MAXIMUM STRENGTH [Concomitant]
     Active Substance: FAMOTIDINE
  4. ATENOLOL 25 MG [Concomitant]
     Active Substance: ATENOLOL
  5. BUSPIRONE 5 MG [Concomitant]

REACTIONS (6)
  - Chest pain [None]
  - Myocardial infarction [None]
  - Dyspnoea [None]
  - Supraventricular tachycardia [None]
  - Palpitations [None]
  - Renal impairment [None]

NARRATIVE: CASE EVENT DATE: 20210208
